FAERS Safety Report 7572023-5 (Version None)
Quarter: 2011Q2

REPORT INFORMATION
  Report Type: 
  Country: None (occurrence: None)
  Receive Date: 20110624
  Receipt Date: 20110616
  Transmission Date: 20111010
  Serious: Yes (Other)
  Sender: FDA-Public Use
  Company Number: US-PFIZER INC-2011121150

PATIENT
  Age: 71 Year
  Sex: Male
  Weight: 78.1 kg

DRUGS (12)
  1. LISINOPRIL [Concomitant]
  2. ALLOPURINOL [Concomitant]
  3. FOLIC ACID [Concomitant]
  4. IMC-A12 [Suspect]
     Indication: TESTICULAR LEIOMYOSARCOMA
     Dosage: 6 MG/KG, OVER 60 MINS WEEKLY
     Route: 042
     Dates: start: 20100720
  5. AMLODIPINE/VALSARTAN [Concomitant]
  6. ACETAMINOPHEN AND HYDROCODONE BITARTRATE [Concomitant]
  7. LANTUS [Concomitant]
  8. CLONIDINE HYDROCHLORIDE [Concomitant]
  9. TEMSIROLIMUS [Suspect]
     Indication: TESTICULAR LEIOMYOSARCOMA
     Dosage: 25 MG, OVER 30 MINUTES WEEKLY
     Route: 042
     Dates: start: 20100720
  10. HYDROCHLOROTHIAZIDE [Concomitant]
  11. PROPRANOLOL [Concomitant]
  12. MULTI-VITAMINS [Concomitant]

REACTIONS (1)
  - PARONYCHIA [None]
